FAERS Safety Report 14461303 (Version 1)
Quarter: 2018Q1

REPORT INFORMATION
  Report Type: Spontaneous
  Country: NL (occurrence: NL)
  Receive Date: 20180130
  Receipt Date: 20180130
  Transmission Date: 20180509
  Serious: Yes (Hospitalization, Other)
  Sender: FDA-Public Use
  Company Number: NL-TEVA-2017-NL-827092

PATIENT
  Age: 77 Year
  Sex: Female
  Weight: 54 kg

DRUGS (4)
  1. CINQAERO 10 MG/ML CONCENTRAAT VOOR OPLOSSING VOOR INFUSIE [Suspect]
     Active Substance: RESLIZUMAB
     Indication: ASTHMA
     Route: 042
     Dates: start: 20171027
  2. CICLESONIDE [Concomitant]
     Active Substance: CICLESONIDE
  3. FORMOTEROL [Concomitant]
     Active Substance: FORMOTEROL
  4. MONTELUKAST [Concomitant]
     Active Substance: MONTELUKAST SODIUM

REACTIONS (2)
  - Limbic encephalitis [Unknown]
  - Confusional state [Unknown]

NARRATIVE: CASE EVENT DATE: 20171030
